FAERS Safety Report 4636272-8 (Version None)
Quarter: 2005Q2

REPORT INFORMATION
  Report Type: 
  Country: None (occurrence: None)
  Receive Date: 20050415
  Receipt Date: 20040506
  Transmission Date: 20051028
  Serious: Yes (Other)
  Sender: FDA-Public Use
  Company Number: US-BRISTOL-MYERS SQUIBB COMPANY-12581013

PATIENT
  Age: 45 Year
  Sex: Female

DRUGS (6)
  1. CARBOPLATIN [Suspect]
     Indication: BREAST CANCER
     Route: 042
     Dates: start: 20040503, end: 20040503
  2. GEMZAR [Concomitant]
     Indication: BREAST CANCER
     Dosage: ADD'L DOSE GIVEN ON 10MAY04
     Route: 042
     Dates: start: 20040503, end: 20040503
  3. VICODIN [Concomitant]
  4. ANZEMET [Concomitant]
     Indication: PREMEDICATION
     Route: 042
     Dates: start: 20040503, end: 20040503
  5. DECADRON [Concomitant]
     Indication: PREMEDICATION
     Route: 042
     Dates: start: 20040503, end: 20040503
  6. EMEND [Concomitant]
     Indication: PREMEDICATION
     Route: 048

REACTIONS (2)
  - DYSPNOEA [None]
  - THROAT TIGHTNESS [None]
